FAERS Safety Report 7997932 (Version 2)
Quarter: 2016Q3

REPORT INFORMATION
  Report Type: Report from Study
  Country: US (occurrence: US)
  Receive Date: 20110620
  Receipt Date: 20160929
  Transmission Date: 20161109
  Serious: Yes (Hospitalization, Other)
  Sender: FDA-Public Use
  Company Number: US-ROCHE-782389

PATIENT
  Age: 63 Year
  Sex: Female
  Weight: 79.6 kg

DRUGS (16)
  1. IXABEPILONE [Suspect]
     Active Substance: IXABEPILONE
     Route: 042
  2. CARBOPLATIN. [Suspect]
     Active Substance: CARBOPLATIN
     Indication: ENDOMETRIAL CANCER
     Dosage: AUC= 6 IV OVER 30 MIN ON DAY 1 X 6 CYCLES; THERAPY; LAST DOSE PRIOR TO SAE 06/DEC/2010
     Route: 042
     Dates: start: 20100712
  3. BEVACIZUMAB [Suspect]
     Active Substance: BEVACIZUMAB
     Indication: ENDOMETRIAL CANCER
     Dosage: FREQUENCY: OVER 30 TO 90 MINUTES ON DAY 1 X 6CYCLES; LAST DOSE PRIOR TO SAE: 03/JAN/2011
     Route: 042
  4. BEVACIZUMAB [Suspect]
     Active Substance: BEVACIZUMAB
     Route: 042
  5. BEVACIZUMAB [Suspect]
     Active Substance: BEVACIZUMAB
     Route: 042
  6. BEVACIZUMAB [Suspect]
     Active Substance: BEVACIZUMAB
     Route: 042
  7. BEVACIZUMAB [Suspect]
     Active Substance: BEVACIZUMAB
     Route: 042
  8. BEVACIZUMAB [Suspect]
     Active Substance: BEVACIZUMAB
     Route: 042
  9. IXABEPILONE [Suspect]
     Active Substance: IXABEPILONE
     Route: 042
  10. BEVACIZUMAB [Suspect]
     Active Substance: BEVACIZUMAB
     Route: 042
  11. BEVACIZUMAB [Suspect]
     Active Substance: BEVACIZUMAB
     Route: 042
  12. IXABEPILONE [Suspect]
     Active Substance: IXABEPILONE
     Indication: ENDOMETRIAL CANCER
     Dosage: OVER 1 HR ON DAY1 X 6 CYCLES; LAST DOSE PRIOR TO SAE: 06/DEC/2010
     Route: 042
  13. IXABEPILONE [Suspect]
     Active Substance: IXABEPILONE
     Route: 042
  14. BEVACIZUMAB [Suspect]
     Active Substance: BEVACIZUMAB
     Route: 042
  15. IXABEPILONE [Suspect]
     Active Substance: IXABEPILONE
     Route: 042
  16. IXABEPILONE [Suspect]
     Active Substance: IXABEPILONE
     Route: 042

REACTIONS (3)
  - White blood cell count decreased [Unknown]
  - Neutrophil count decreased [Unknown]
  - Seizure [Recovered/Resolved]

NARRATIVE: CASE EVENT DATE: 20101223
